FAERS Safety Report 7534611-1 (Version None)
Quarter: 2011Q2

REPORT INFORMATION
  Report Type: 
  Country: None (occurrence: None)
  Receive Date: 20110609
  Receipt Date: 20100614
  Transmission Date: 20111010
  Serious: Yes (Hospitalization)
  Sender: FDA-Public Use
  Company Number: PHHY2010US34979

PATIENT
  Sex: Male

DRUGS (19)
  1. NORVASC [Suspect]
  2. MIRALAX [Concomitant]
  3. ZANTAC [Suspect]
  4. CLONIDINE [Suspect]
  5. STOOL SOFTENER [Concomitant]
  6. DYAZIDE [Suspect]
  7. PERCOCET [Concomitant]
     Dosage: PRN
  8. HYDRENE [Concomitant]
  9. DIFLUCAN [Concomitant]
  10. POTASSIUM CHLORIDE [Suspect]
  11. COREG [Suspect]
  12. ZOCOR [Suspect]
  13. FLUCONAZOLE [Suspect]
  14. HYDRALAZINE HCL [Suspect]
  15. DIOVAN [Suspect]
     Dosage: UNK
  16. BENAZEPRIL HYDROCHLORIDE [Suspect]
  17. ISOSORBIDE [Concomitant]
  18. AMBIEN [Suspect]
  19. FLOMAX [Suspect]

REACTIONS (4)
  - PERIRENAL HAEMATOMA [None]
  - GASTROINTESTINAL MOTILITY DISORDER [None]
  - RENAL CANCER [None]
  - POST PROCEDURAL CONSTIPATION [None]
